FAERS Safety Report 8018686-1 (Version None)
Quarter: 2012Q1

REPORT INFORMATION
  Report Type: 
  Country: None (occurrence: None)
  Receive Date: 20120103
  Receipt Date: 20120103
  Transmission Date: 20120608
  Serious: Yes (Other)
  Sender: FDA-Public Use
  Company Number: None

PATIENT
  Age: 17 Year
  Sex: Male
  Weight: 65.77 kg

DRUGS (2)
  1. ZOLOFT [Suspect]
     Indication: ANXIETY
     Dosage: 100MG AND 50 MG PILLS
     Dates: start: 20101007, end: 20111231
  2. ZOLOFT [Suspect]
     Indication: DEPRESSION
     Dosage: 100MG AND 50 MG PILLS
     Dates: start: 20101007, end: 20111231

REACTIONS (5)
  - DRUG WITHDRAWAL SYNDROME [None]
  - ACTIVITIES OF DAILY LIVING IMPAIRED [None]
  - IRRITABILITY [None]
  - ANXIETY [None]
  - DECREASED APPETITE [None]
